FAERS Safety Report 6216534-3 (Version None)
Quarter: 2009Q2

REPORT INFORMATION
  Report Type: 
  Country: None (occurrence: None)
  Receive Date: 20090605
  Receipt Date: 20090602
  Transmission Date: 20091009
  Serious: Yes (Hospitalization)
  Sender: FDA-Public Use
  Company Number: US-BRISTOL-MYERS SQUIBB COMPANY-14642342

PATIENT
  Age: 48 Year
  Sex: Male
  Weight: 55 kg

DRUGS (4)
  1. ERBITUX [Suspect]
     Indication: NON-SMALL CELL LUNG CANCER
     Dosage: INITIATED ON 10MAR09. 400MG/M2 LOADING DOSE DAY 1. THERAPY INTERRUPTED ON 26-MAY-2009
     Dates: start: 20090519
  2. TAXOL [Suspect]
     Indication: NON-SMALL CELL LUNG CANCER
     Dosage: INITIATED ON 17MAR09.45MG/M2.
     Dates: start: 20090519, end: 20090519
  3. CARBOPLATIN [Suspect]
     Indication: NON-SMALL CELL LUNG CANCER
     Dosage: INITIATED ON 17MAR09.AUC=2.
     Dates: start: 20090519, end: 20090519
  4. RADIATION THERAPY [Suspect]
     Indication: NON-SMALL CELL LUNG CANCER
     Dosage: TOTAL DOSE: 6000CGY. NO OF FRACTIONS - 30 NO OF ELAPSED DAYS - 43
     Dates: start: 20090428, end: 20090428

REACTIONS (11)
  - ANOREXIA [None]
  - DEHYDRATION [None]
  - GRANULOCYTE COUNT DECREASED [None]
  - HAEMOGLOBIN DECREASED [None]
  - HYPOKALAEMIA [None]
  - HYPOMAGNESAEMIA [None]
  - HYPOPHOSPHATAEMIA [None]
  - INFECTION [None]
  - OESOPHAGITIS [None]
  - PLATELET COUNT DECREASED [None]
  - WHITE BLOOD CELL COUNT DECREASED [None]
